FAERS Safety Report 7348369-2 (Version None)
Quarter: 2011Q1

REPORT INFORMATION
  Report Type: 
  Country: None (occurrence: None)
  Receive Date: 20110311
  Receipt Date: 20110303
  Transmission Date: 20110831
  Serious: Yes (Life-Threatening)
  Sender: FDA-Public Use
  Company Number: US-MERCK-1103USA00953

PATIENT
  Sex: Female

DRUGS (4)
  1. ALENDRONATE SODIUM [Suspect]
     Route: 048
     Dates: start: 20080201
  2. FOSAMAX [Suspect]
     Route: 048
  3. ALENDRONATE SODIUM [Suspect]
     Route: 048
     Dates: start: 20080201
  4. ALENDRONATE SODIUM [Suspect]
     Route: 048
     Dates: start: 20080201

REACTIONS (1)
  - FRACTURE [None]
